FAERS Safety Report 25733241 (Version 2)
Quarter: 2025Q3

REPORT INFORMATION
  Report Type: Spontaneous
  Country: JP (occurrence: JP)
  Receive Date: 20250828
  Receipt Date: 20250908
  Transmission Date: 20251020
  Serious: Yes (Hospitalization, Other)
  Sender: BAXTER
  Company Number: JP-shionogiph-202500007784

PATIENT
  Age: 60 Year
  Sex: Female
  Weight: 64.6 kg

DRUGS (11)
  1. CYCLOPHOSPHAMIDE [Suspect]
     Active Substance: CYCLOPHOSPHAMIDE
     Indication: Diffuse large B-cell lymphoma
     Dosage: CHOP THERAPY
     Route: 041
     Dates: start: 20250720, end: 20250720
  2. DOXORUBICIN [Suspect]
     Active Substance: DOXORUBICIN
     Indication: Diffuse large B-cell lymphoma
     Dosage: 85 MG, QD (CHOP THERAPY) INJECTION
     Route: 041
     Dates: start: 20250720, end: 20250720
  3. PREDONINE [Suspect]
     Active Substance: PREDNISOLONE
     Indication: Diffuse large B-cell lymphoma
     Dosage: 50 MG, QD
     Route: 048
     Dates: start: 20250718, end: 20250718
  4. PREDONINE [Suspect]
     Active Substance: PREDNISOLONE
     Route: 048
     Dates: start: 20250719, end: 20250719
  5. MEROPENEM [Concomitant]
     Active Substance: MEROPENEM
     Indication: Diffuse large B-cell lymphoma
     Route: 041
     Dates: start: 20250718, end: 20250803
  6. ONCOVIN [Concomitant]
     Active Substance: VINCRISTINE SULFATE
     Indication: Diffuse large B-cell lymphoma
     Dosage: 2MG, QD CHOP THERAPY
     Route: 041
     Dates: start: 20250720, end: 20250720
  7. MICAFUNGIN SODIUM [Concomitant]
     Active Substance: MICAFUNGIN SODIUM
     Indication: Diffuse large B-cell lymphoma
     Dosage: 100 MG, QD
     Route: 041
     Dates: start: 20250720, end: 20250801
  8. HUMULIN R [Concomitant]
     Active Substance: INSULIN HUMAN
     Indication: Diabetes mellitus
     Route: 058
     Dates: start: 20250717, end: 20250805
  9. VONOPRAZAN FUMARATE [Concomitant]
     Active Substance: VONOPRAZAN FUMARATE
     Indication: Diffuse large B-cell lymphoma
     Dosage: 100 MG, QD
     Route: 048
     Dates: start: 20250718
  10. FLUCONAZOLE [Concomitant]
     Active Substance: FLUCONAZOLE
     Indication: Diffuse large B-cell lymphoma
     Dosage: 200 MG, QD
     Route: 048
     Dates: start: 20250718
  11. CALONAL [Concomitant]
     Active Substance: ACETAMINOPHEN
     Indication: Diffuse large B-cell lymphoma
     Route: 048
     Dates: start: 20250718

REACTIONS (1)
  - Delirium [Recovering/Resolving]

NARRATIVE: CASE EVENT DATE: 20250720
